FAERS Safety Report 5270927-X (Version None)
Quarter: 2007Q1

REPORT INFORMATION
  Report Type: 
  Country: None (occurrence: None)
  Receive Date: 20070321
  Receipt Date: 20070315
  Transmission Date: 20070707
  Serious: Yes (Life-Threatening, Hospitalization)
  Sender: FDA-Public Use
  Company Number: PT-AVENTIS-200711772GDDC

PATIENT
  Age: 73 Year
  Sex: Female
  Weight: 90 kg

DRUGS (15)
  1. TAXOTERE [Suspect]
     Indication: BREAST CANCER
     Route: 042
     Dates: start: 20070131, end: 20070131
  2. METFORMIN HYDROCHLORIDE [Concomitant]
     Indication: DIABETES MELLITUS
     Route: 048
  3. GLIBENCLAMIDE [Concomitant]
     Indication: DIABETES MELLITUS
     Route: 048
  4. ACETAMINOPHEN [Concomitant]
     Indication: PAIN
     Route: 048
  5. ROSUVASTATIN CALCIUM [Concomitant]
     Indication: DYSLIPIDAEMIA
     Route: 048
  6. PREDNISOLONE [Concomitant]
     Indication: PREMEDICATION
     Route: 048
  7. PREDNISOLONE [Concomitant]
     Route: 048
  8. CIPROFLOXACIN [Concomitant]
     Indication: MASTITIS
     Route: 048
     Dates: start: 20061115, end: 20061122
  9. LORNOXICAM [Concomitant]
     Indication: MASTITIS
     Route: 048
     Dates: start: 20061115, end: 20061129
  10. ALLOPURINOL [Concomitant]
     Route: 048
     Dates: start: 20061122, end: 20061129
  11. FLUOROURACIL [Concomitant]
     Indication: BREAST CANCER
     Route: 042
     Dates: start: 20061129, end: 20070110
  12. EPIRUBICIN HYDROCHLORIDE [Concomitant]
     Indication: BREAST CANCER
     Route: 042
     Dates: start: 20061129, end: 20070110
  13. CYCLOPHOSPHAMIDE [Concomitant]
     Indication: BREAST CANCER
     Route: 042
     Dates: start: 20061129, end: 20070110
  14. GRANISETRON  HCL [Concomitant]
     Indication: BREAST CANCER
     Route: 042
     Dates: start: 20061129
  15. DEXAMETHASONE SODIUM PHOSPHATE [Concomitant]
     Indication: BREAST CANCER
     Route: 042
     Dates: start: 20061129

REACTIONS (2)
  - ANAPHYLACTIC SHOCK [None]
  - CARDIAC ARREST [None]
